FAERS Safety Report 17650314 (Version 1)
Quarter: 2020Q2

REPORT INFORMATION
  Report Type: Report from Study
  Country: IL (occurrence: IL)
  Receive Date: 20200409
  Receipt Date: 20200409
  Transmission Date: 20200713
  Serious: Yes (Other)
  Sender: FDA-Public Use
  Company Number: IL-EMD SERONO-9155284

PATIENT
  Age: 54 Year
  Sex: Male

DRUGS (2)
  1. MAVENCLAD [Suspect]
     Active Substance: CLADRIBINE
     Indication: MULTIPLE SCLEROSIS
     Dosage: YEAR ONE COURSE ONE THERAPY: ONE TABLET DAILY FOR 6 DAYS.
     Route: 048
     Dates: start: 20200226
  2. MAVENCLAD [Suspect]
     Active Substance: CLADRIBINE
     Dosage: YEAR ONE COURSE TWO THERAPY.
     Route: 048
     Dates: start: 20200329

REACTIONS (2)
  - Pneumonia [Recovering/Resolving]
  - Anosmia [Recovered/Resolved]

NARRATIVE: CASE EVENT DATE: 202003
